FAERS Safety Report 11450779 (Version 1)
Quarter: 2015Q3

REPORT INFORMATION
  Report Type: Spontaneous
  Country: US (occurrence: US)
  Receive Date: 20150903
  Receipt Date: 20150903
  Transmission Date: 20151125
  Serious: No
  Sender: FDA-Public Use
  Company Number: US-ROCHE-1036273

PATIENT
  Sex: Female

DRUGS (2)
  1. COPEGUS [Suspect]
     Active Substance: RIBAVIRIN
     Indication: HEPATITIS C
     Dosage: DIVIDED DOSE
     Route: 048
     Dates: start: 20110815, end: 20120123
  2. PEGASYS [Suspect]
     Active Substance: PEGINTERFERON ALFA-2A
     Indication: HEPATITIS C
     Route: 058
     Dates: start: 20110815, end: 20120123

REACTIONS (8)
  - Alopecia [Unknown]
  - Toothache [Unknown]
  - Pain [Unknown]
  - Fatigue [Unknown]
  - Asthenia [Recovered/Resolved]
  - Skin ulcer [Unknown]
  - Hair disorder [Unknown]
  - Influenza like illness [Recovered/Resolved]
